FAERS Safety Report 17871279 (Version 2)
Quarter: 2020Q2

REPORT INFORMATION
  Report Type: Report from Study
  Country: IT (occurrence: IT)
  Receive Date: 20200608
  Receipt Date: 20200619
  Transmission Date: 20200714
  Serious: Yes (Hospitalization)
  Sender: FDA-Public Use
  Company Number: IT-PFIZER INC-2020220920

PATIENT
  Age: 20 Year
  Sex: Male

DRUGS (4)
  1. PETEHA [Concomitant]
     Active Substance: PROTIONAMIDE
     Indication: TUBERCULOSIS
     Dosage: 250 MG, 2X/DAY
  2. ZYVOXID [Suspect]
     Active Substance: LINEZOLID
     Indication: CUTANEOUS TUBERCULOSIS
     Dosage: 600 MG, 1X/DAY
     Route: 048
     Dates: start: 20190722, end: 20200427
  3. LAMPRENE [Concomitant]
     Active Substance: CLOFAZIMINE
     Indication: TUBERCULOSIS
     Dosage: 100 MG, DAILY
  4. CICLOSERINA ANTIBIOTICE [Concomitant]
     Indication: TUBERCULOSIS
     Dosage: 250 MG, 2X/DAY

REACTIONS (2)
  - Optic neuritis [Recovering/Resolving]
  - Visual impairment [Recovering/Resolving]

NARRATIVE: CASE EVENT DATE: 20200427
